FAERS Safety Report 10213467 (Version 3)
Quarter: 2015Q2

REPORT INFORMATION
  Report Type: Other
  Country: CO (occurrence: CO)
  Receive Date: 20140603
  Receipt Date: 20150421
  Transmission Date: 20150821
  Serious: Yes (Hospitalization, Other)
  Sender: FDA-Public Use
  Company Number: CO-SHIRE-CO201402259

PATIENT
  Age: 15 Year
  Sex: Male
  Weight: 17 kg

DRUGS (1)
  1. ELAPRASE [Suspect]
     Active Substance: IDURSULFASE
     Indication: MUCOPOLYSACCHARIDOSIS II
     Dosage: 12 MG (TWO VIALS), OTHER (EVERY 7 DAYS)
     Route: 041
     Dates: start: 20100101

REACTIONS (4)
  - Malnutrition [Unknown]
  - Seizure [Recovered/Resolved]
  - Infusion related reaction [Recovered/Resolved]
  - Unresponsive to stimuli [Unknown]

NARRATIVE: CASE EVENT DATE: 201405
